FAERS Safety Report 7287367-4 (Version None)
Quarter: 2011Q1

REPORT INFORMATION
  Report Type: 
  Country: None (occurrence: None)
  Receive Date: 20110208
  Receipt Date: 20110208
  Transmission Date: 20110831
  Serious: Yes (Other)
  Sender: FDA-Public Use
  Company Number: None

PATIENT
  Age: 58 Year
  Sex: Female
  Weight: 53.0709 kg

DRUGS (1)
  1. BENZONATATE [Suspect]
     Indication: COUGH
     Dates: start: 20110202, end: 20110202

REACTIONS (2)
  - CONFUSIONAL STATE [None]
  - DIZZINESS [None]
